FAERS Safety Report 5069194-1 (Version None)
Quarter: 2006Q3

REPORT INFORMATION
  Report Type: 
  Country: None (occurrence: None)
  Receive Date: 20060803
  Receipt Date: 20060615
  Transmission Date: 20061208
  Serious: Yes (Other)
  Sender: FDA-Public Use
  Company Number: GB-JNJFOC-20060603782

PATIENT
  Age: 6 Year
  Sex: Female
  Weight: 29.8 kg

DRUGS (6)
  1. REMICADE [Suspect]
     Indication: IRIDOCYCLITIS
     Route: 042
  2. METHOTREXATE [Concomitant]
     Indication: UVEITIS
     Route: 058
  3. METHOTREXATE [Concomitant]
     Indication: JUVENILE ARTHRITIS
     Route: 058
  4. PIROXICAM [Concomitant]
     Indication: UVEITIS
     Route: 048
  5. PIROXICAM [Concomitant]
     Indication: JUVENILE ARTHRITIS
     Route: 048
  6. STEROID EYE DROPS [Concomitant]
     Route: 065

REACTIONS (4)
  - DYSPNOEA [None]
  - FLUSHING [None]
  - URTICARIA [None]
  - WHEEZING [None]
